FAERS Safety Report 10544886 (Version 1)
Quarter: 2014Q4

REPORT INFORMATION
  Report Type: Spontaneous
  Country: GB (occurrence: None)
  Receive Date: 20141016
  Receipt Date: 20141016
  Transmission Date: 20150529
  Serious: Yes (Other)
  Sender: FDA-Public Use
  Company Number: 2013GMK007240

PATIENT
  Sex: Female

DRUGS (1)
  1. GABAPENTIN (GABAPENTIN) UNKNOWN [Suspect]
     Active Substance: GABAPENTIN
     Indication: PRODUCT USED FOR UNKNOWN INDICATION

REACTIONS (1)
  - Seizure [None]

NARRATIVE: CASE EVENT DATE: 20131002
